FAERS Safety Report 23044734 (Version 7)
Quarter: 2024Q1

REPORT INFORMATION
  Report Type: Spontaneous
  Country: PL (occurrence: PL)
  Receive Date: 20231009
  Receipt Date: 20240123
  Transmission Date: 20240410
  Serious: Yes (Hospitalization, Other)
  Sender: FDA-Public Use
  Company Number: PL-GLAXOSMITHKLINE-PLCH2023HLN046655

PATIENT
  Age: 31 Year
  Sex: Male

DRUGS (41)
  1. DICLOFENAC [Suspect]
     Active Substance: DICLOFENAC
     Indication: Prostatitis
     Dosage: 50 MG, 2X PER DAY
     Route: 054
  2. DOXYLAMINE [Suspect]
     Active Substance: DOXYLAMINE
     Indication: Depression
     Dosage: 25 MG AT NIGHT
     Route: 065
  3. DOXYLAMINE [Suspect]
     Active Substance: DOXYLAMINE
     Indication: Depression
     Dosage: 25 MG, QD (25 MG AT NIGHT)
     Route: 065
  4. IBUPROFEN [Suspect]
     Active Substance: IBUPROFEN
     Indication: Analgesic therapy
     Dosage: UNK
     Route: 065
  5. IBUPROFEN [Suspect]
     Active Substance: IBUPROFEN
     Indication: Pain
  6. IBUPROFEN [Suspect]
     Active Substance: IBUPROFEN
     Indication: Pain
     Route: 065
  7. MELOXICAM [Suspect]
     Active Substance: MELOXICAM
     Indication: Analgesic therapy
     Dosage: UNK
     Route: 065
  8. MELOXICAM [Suspect]
     Active Substance: MELOXICAM
     Indication: Analgesic therapy
     Route: 065
  9. METAMIZOLE [Suspect]
     Active Substance: METAMIZOLE
     Indication: Analgesic therapy
     Dosage: UNK
     Route: 065
  10. METAMIZOLE [Suspect]
     Active Substance: METAMIZOLE
     Indication: Analgesic therapy
     Route: 065
  11. METAMIZOLE [Suspect]
     Active Substance: METAMIZOLE
     Indication: Pain
  12. ACETAMINOPHEN [Suspect]
     Active Substance: ACETAMINOPHEN
     Indication: Analgesic therapy
     Dosage: UNK
     Route: 065
  13. ACETAMINOPHEN [Suspect]
     Active Substance: ACETAMINOPHEN
     Indication: Pain
  14. ACETAMINOPHEN [Suspect]
     Active Substance: ACETAMINOPHEN
     Indication: Analgesic therapy
     Route: 065
  15. DEXAMETHASONE [Concomitant]
     Active Substance: DEXAMETHASONE
     Indication: Product used for unknown indication
     Dosage: UNK
     Route: 065
  16. ELMIRON [Concomitant]
     Active Substance: PENTOSAN POLYSULFATE SODIUM
     Indication: Product used for unknown indication
     Dosage: 100 MG, TID
     Route: 048
  17. ETORICOXIB [Concomitant]
     Active Substance: ETORICOXIB
     Indication: Product used for unknown indication
     Dosage: 60 MG, DAILY
     Route: 065
  18. KETAMINE [Concomitant]
     Active Substance: KETAMINE
     Indication: Product used for unknown indication
     Dosage: UNK
     Route: 065
  19. KETAMINE [Concomitant]
     Active Substance: KETAMINE
     Dosage: UNK
     Route: 065
  20. LIDOCAINE HYDROCHLORIDE [Concomitant]
     Active Substance: LIDOCAINE HYDROCHLORIDE
     Dosage: UNK, DAILY 5 MG/KG BODY WEIGHT DOSE IN 30-MINUTE INFUSION
     Route: 042
  21. LIDOCAINE HYDROCHLORIDE [Concomitant]
     Active Substance: LIDOCAINE HYDROCHLORIDE
     Dosage: UNK, DAILY 5 MG/KG BODY WEIGHT DOSE IN 30-MINUTE INFUSION
     Route: 042
  22. LIDOCAINE HYDROCHLORIDE [Concomitant]
     Active Substance: LIDOCAINE HYDROCHLORIDE
     Dosage: UNK, DAILY 5 MG/KG BODY WEIGHT DOSE IN 30-MINUTE INFUSION
     Route: 042
  23. LIDOCAINE HYDROCHLORIDE [Concomitant]
     Active Substance: LIDOCAINE HYDROCHLORIDE
     Indication: Product used for unknown indication
     Dosage: UNK, DAILY 5 MG/KG BODY WEIGHT DOSE IN 30-MINUTE INFUSION
     Route: 041
  24. MAGNESIUM SULFATE [Concomitant]
     Active Substance: MAGNESIUM SULFATE\MAGNESIUM SULFATE HEPTAHYDRATE
     Indication: Product used for unknown indication
     Dosage: UNK
     Route: 065
  25. MILNACIPRAN [Concomitant]
     Active Substance: MILNACIPRAN
     Indication: Product used for unknown indication
     Dosage: 50 MG, DAILY
     Route: 065
  26. MILNACIPRAN [Concomitant]
     Active Substance: MILNACIPRAN
     Dosage: 50 MG, DAILY
     Route: 065
  27. PREGABALIN [Concomitant]
     Active Substance: PREGABALIN
     Indication: Product used for unknown indication
     Dosage: 75 MG
     Route: 065
  28. PREGABALIN [Concomitant]
     Active Substance: PREGABALIN
     Dosage: 75 MG
     Route: 065
  29. PREGABALIN [Concomitant]
     Active Substance: PREGABALIN
     Dosage: 75 MG
     Route: 065
  30. PREGABALIN [Concomitant]
     Active Substance: PREGABALIN
     Dosage: 75 MG
     Route: 065
  31. PREGABALIN [Concomitant]
     Active Substance: PREGABALIN
     Dosage: 75 MG
     Route: 065
  32. PREGABALIN [Concomitant]
     Active Substance: PREGABALIN
     Dosage: 75 MG
     Route: 065
  33. TRAZODONE [Concomitant]
     Active Substance: TRAZODONE HYDROCHLORIDE
     Indication: Product used for unknown indication
     Dosage: 25 MG
     Route: 065
  34. TRAZODONE [Concomitant]
     Active Substance: TRAZODONE HYDROCHLORIDE
     Dosage: 25 MG
     Route: 065
  35. VALPROIC ACID [Concomitant]
     Active Substance: VALPROIC ACID
     Indication: Product used for unknown indication
     Dosage: UNK
     Route: 065
  36. CIPROFLOXACIN [Interacting]
     Active Substance: CIPROFLOXACIN
     Dosage: 500 MG, BID (500 MG, 2 X PER DAY)
     Route: 048
  37. CIPROFLOXACIN [Interacting]
     Active Substance: CIPROFLOXACIN
     Indication: Prostatitis
     Dosage: 500 MG, QD (500 MG, 1 X PER DAY)
     Route: 048
  38. CIPROFLOXACIN [Interacting]
     Active Substance: CIPROFLOXACIN
     Dosage: 500 MG, 1X PER DAY
     Route: 048
  39. CIPROFLOXACIN [Interacting]
     Active Substance: CIPROFLOXACIN
     Indication: Prostatitis
     Dosage: 500 MG, 2X PER DAY
     Route: 065
  40. SERTRALINE [Interacting]
     Active Substance: SERTRALINE HYDROCHLORIDE
     Indication: Depression
     Dosage: 50 MG IN THE MORNING
     Route: 065
  41. SERTRALINE [Interacting]
     Active Substance: SERTRALINE HYDROCHLORIDE
     Indication: Depression
     Dosage: 50 MG, QD (50 MG IN THE MORNING)
     Route: 065

REACTIONS (6)
  - Condition aggravated [Recovered/Resolved]
  - Pain [Recovered/Resolved]
  - Prostatic pain [Recovered/Resolved]
  - Drug interaction [Unknown]
  - Hospitalisation [Unknown]
  - Drug ineffective [Unknown]
